FAERS Safety Report 7078284-3 (Version None)
Quarter: 2010Q4

REPORT INFORMATION
  Report Type: 
  Country: None (occurrence: None)
  Receive Date: 20101101
  Receipt Date: 20101101
  Transmission Date: 20110411
  Serious: Yes (Hospitalization)
  Sender: FDA-Public Use
  Company Number: None

PATIENT
  Sex: Male
  Weight: 8.6183 kg

DRUGS (1)
  1. HYLAND'S TEETHING TABLETS 2-3 TABLETS UNDER TONGUE 4XS/DAY HYLAND'S IN [Suspect]
     Indication: TEETHING
     Dosage: 2-4 TABLETS BID PO
     Route: 048
     Dates: start: 20100601, end: 20101001

REACTIONS (3)
  - ANAL FISTULA [None]
  - CONSTIPATION [None]
  - PRODUCT QUALITY ISSUE [None]
